FAERS Safety Report 17563265 (Version 1)
Quarter: 2020Q1

REPORT INFORMATION
  Report Type: Report from Study
  Country: None (occurrence: US)
  Receive Date: 20200320
  Receipt Date: 20200320
  Transmission Date: 20200409
  Serious: Yes (Other)
  Sender: FDA-Public Use
  Company Number: US-ABBVIE-20K-163-3286398-00

PATIENT
  Age: 73 Year
  Sex: Male
  Weight: 74.46 kg

DRUGS (11)
  1. FOLIC ACID. [Concomitant]
     Active Substance: FOLIC ACID
     Indication: INFLAMMATION
  2. FUROSEMIDE. [Concomitant]
     Active Substance: FUROSEMIDE
     Indication: CARDIOVASCULAR DISORDER
  3. CELEBREX [Concomitant]
     Active Substance: CELECOXIB
     Indication: RHEUMATOID ARTHRITIS
  4. ADVAIR HFA [Concomitant]
     Active Substance: FLUTICASONE PROPIONATE\SALMETEROL XINAFOATE
     Indication: CHRONIC OBSTRUCTIVE PULMONARY DISEASE
  5. METHOTREXATE. [Concomitant]
     Active Substance: METHOTREXATE
     Indication: RHEUMATOID ARTHRITIS
  6. SPIRONOLACTONE. [Concomitant]
     Active Substance: SPIRONOLACTONE
     Indication: SWELLING
  7. HUMIRA [Suspect]
     Active Substance: ADALIMUMAB
     Indication: RHEUMATOID ARTHRITIS
     Route: 058
     Dates: start: 20150603
  8. PROLIA [Suspect]
     Active Substance: DENOSUMAB
     Indication: ANKYLOSING SPONDYLITIS
     Dosage: EVERY 6 MONTHS (MAR AND SEP)
     Route: 058
     Dates: start: 201803
  9. VITAMIN D [Concomitant]
     Active Substance: VITAMIN D NOS
     Indication: VITAMIN SUPPLEMENTATION
  10. HUMIRA [Suspect]
     Active Substance: ADALIMUMAB
     Indication: RHEUMATOID ARTHRITIS
     Dosage: CITRATE FREE
     Route: 058
  11. ATORVASTATIN [Concomitant]
     Active Substance: ATORVASTATIN
     Indication: BLOOD CHOLESTEROL

REACTIONS (12)
  - Osteopenia [Not Recovered/Not Resolved]
  - Arthralgia [Not Recovered/Not Resolved]
  - Muscle atrophy [Not Recovered/Not Resolved]
  - Arteriosclerosis [Not Recovered/Not Resolved]
  - Pulmonary mass [Not Recovered/Not Resolved]
  - Muscle strength abnormal [Not Recovered/Not Resolved]
  - Bone density decreased [Not Recovered/Not Resolved]
  - Insomnia [Not Recovered/Not Resolved]
  - Spinal compression fracture [Recovering/Resolving]
  - Aortic arteriosclerosis [Not Recovered/Not Resolved]
  - Impaired healing [Unknown]
  - Balance disorder [Not Recovered/Not Resolved]

NARRATIVE: CASE EVENT DATE: 201901
